FAERS Safety Report 4448826-2 (Version None)
Quarter: 2004Q3

REPORT INFORMATION
  Report Type: 
  Country: None (occurrence: None)
  Receive Date: 20040909
  Receipt Date: 20040826
  Transmission Date: 20050211
  Serious: Yes (Hospitalization)
  Sender: FDA-Public Use
  Company Number: 208685

PATIENT
  Sex: Male

DRUGS (4)
  1. AVASTIN [Suspect]
     Dosage: INTRAVENOUS
     Route: 042
  2. OXALIPLATIN (OXALIPLATIN) [Suspect]
     Dosage: INTRAVENOUS
     Route: 042
  3. FLUOROURACIL [Concomitant]
  4. LEUCOVORIN CALCIUM [Concomitant]

REACTIONS (3)
  - BRONCHOSPASM [None]
  - CYANOSIS [None]
  - PULSE ABSENT [None]
